FAERS Safety Report 4691477-5 (Version None)
Quarter: 2005Q2

REPORT INFORMATION
  Report Type: 
  Country: None (occurrence: None)
  Receive Date: 20050613
  Receipt Date: 20040122
  Transmission Date: 20051028
  Serious: No
  Sender: FDA-Public Use
  Company Number: 0002628

PATIENT
  Age: 37 Year
  Sex: Female

DRUGS (1)
  1. INTRALIPID 20% [Suspect]
     Indication: PARENTERAL NUTRITION
     Dosage: INTRAVENOUS USE
     Route: 042
     Dates: start: 20031212, end: 20031212

REACTIONS (3)
  - HYPERSENSITIVITY [None]
  - SWOLLEN TONGUE [None]
  - URTICARIA [None]
